FAERS Safety Report 23617219 (Version 1)
Quarter: 2024Q1

REPORT INFORMATION
  Report Type: Report from Study
  Country: FR (occurrence: FR)
  Receive Date: 20240311
  Receipt Date: 20240311
  Transmission Date: 20240410
  Serious: Yes (Disabling, Other)
  Sender: FDA-Public Use
  Company Number: FR-UCBSA-2023000013

PATIENT
  Age: 70 Year
  Sex: Male
  Weight: 87 kg

DRUGS (7)
  1. ROZANOLIXIZUMAB [Suspect]
     Active Substance: ROZANOLIXIZUMAB
     Indication: Myasthenia gravis
     Dosage: 4 MILLILITER, WEEKLY (QW)
     Route: 058
     Dates: start: 20221218
  2. ROZANOLIXIZUMAB [Suspect]
     Active Substance: ROZANOLIXIZUMAB
     Dosage: 1 CONTINUOUS SC ADMINISTRATION, EV 2 WEEKS
     Route: 058
     Dates: end: 20231220
  3. GLICLAZIDE [Concomitant]
     Active Substance: GLICLAZIDE
     Indication: Diabetes mellitus
     Dosage: 30 MILLIGRAM, ONCE DAILY (QD)
     Route: 048
  4. IVABRADINE [Concomitant]
     Active Substance: IVABRADINE
     Indication: Cardiac disorder
     Dosage: UNK
     Route: 048
  5. MIRTAZAPINE [Concomitant]
     Active Substance: MIRTAZAPINE
     Indication: Depression
     Dosage: UNK
     Route: 048
     Dates: start: 201211
  6. PREDNISONE [Concomitant]
     Active Substance: PREDNISONE
     Indication: Myasthenia gravis
     Dosage: 12.5 MILLIGRAM, MORNINGS
  7. IVABRADINE [Concomitant]
     Active Substance: IVABRADINE
     Indication: Product used for unknown indication
     Dosage: 5 MILLIGRAM, 2X/DAY (BID)

REACTIONS (8)
  - Diarrhoea [Recovered/Resolved]
  - Abdominal pain [Recovered/Resolved]
  - Dizziness [Recovered/Resolved]
  - Pancreatitis [Unknown]
  - Headache [Recovered/Resolved]
  - Dyspepsia [Unknown]
  - Presyncope [Unknown]
  - Off label use [Unknown]

NARRATIVE: CASE EVENT DATE: 20221218
